FAERS Safety Report 23124541 (Version 2)
Quarter: 2023Q4

REPORT INFORMATION
  Report Type: Other
  Country: SE (occurrence: SE)
  Receive Date: 20231030
  Receipt Date: 20231108
  Transmission Date: 20240109
  Serious: Yes (Hospitalization)
  Sender: FDA-Public Use
  Company Number: SE-ROCHE-3445472

PATIENT
  Age: 25 Year
  Sex: Female

DRUGS (2)
  1. RITUXIMAB [Suspect]
     Active Substance: RITUXIMAB
     Indication: Mixed connective tissue disease
     Dosage: EVERY 6TH MONTH
     Route: 065
  2. PREDNISOLONE [Suspect]
     Active Substance: PREDNISOLONE
     Indication: Mixed connective tissue disease
     Route: 065

REACTIONS (6)
  - COVID-19 [Recovered/Resolved]
  - Haemophilus infection [Recovered/Resolved]
  - Atypical pneumonia [Recovered/Resolved]
  - Vaccination failure [Unknown]
  - Vaccine interaction [Unknown]
  - Off label use [Unknown]

NARRATIVE: CASE EVENT DATE: 20220201
